FAERS Safety Report 6354605-1 (Version None)
Quarter: 2009Q3

REPORT INFORMATION
  Report Type: 
  Country: None (occurrence: None)
  Receive Date: 20090909
  Receipt Date: 20090826
  Transmission Date: 20100115
  Serious: Yes (Hospitalization)
  Sender: FDA-Public Use
  Company Number: 8050576

PATIENT
  Age: 46 Year

DRUGS (1)
  1. CIMZIA [Suspect]
     Indication: CROHN'S DISEASE
     Dosage: 400 MG /M SC
     Route: 058
     Dates: start: 20081216

REACTIONS (5)
  - ABDOMINAL PAIN UPPER [None]
  - ABNORMAL LOSS OF WEIGHT [None]
  - CYSTITIS [None]
  - DEHYDRATION [None]
  - VOMITING [None]
